FAERS Safety Report 10379202 (Version 4)
Quarter: 2014Q3

REPORT INFORMATION
  Report Type: Spontaneous
  Country: JP (occurrence: JP)
  Receive Date: 20140812
  Receipt Date: 20140916
  Transmission Date: 20150326
  Serious: Yes (Disabling)
  Sender: FDA-Public Use
  Company Number: JP-VIIV HEALTHCARE LIMITED-B1022707A

PATIENT
  Age: 65 Year
  Sex: Male

DRUGS (7)
  1. ZITHROMAC [Concomitant]
     Active Substance: AZITHROMYCIN DIHYDRATE
     Indication: OPPORTUNISTIC INFECTION PROPHYLAXIS
     Dosage: 1200MG PER DAY
     Route: 048
     Dates: start: 20140501
  2. MYCOSYST [Concomitant]
     Active Substance: FLUCONAZOLE
     Indication: ORAL CANDIDIASIS
     Dosage: 100MG PER DAY
     Route: 048
     Dates: start: 20140711, end: 20140715
  3. BAKTAR [Concomitant]
     Active Substance: SULFAMETHOXAZOLE\TRIMETHOPRIM
     Indication: OPPORTUNISTIC INFECTION PROPHYLAXIS
     Dosage: 1IUAX PER DAY
     Route: 048
     Dates: start: 20140417
  4. FEBURIC [Concomitant]
     Active Substance: FEBUXOSTAT
     Dosage: 20MG PER DAY
     Route: 048
  5. ISENTRESS [Concomitant]
     Active Substance: RALTEGRAVIR POTASSIUM
     Indication: HIV INFECTION
     Dosage: 400MG TWICE PER DAY
     Route: 048
     Dates: start: 20140711, end: 20140718
  6. EPZICOM [Suspect]
     Active Substance: ABACAVIR SULFATE\LAMIVUDINE
     Indication: HIV INFECTION
     Dosage: 1IUAX PER DAY
     Route: 048
     Dates: start: 20140711, end: 20140718
  7. ISENTRESS [Concomitant]
     Active Substance: RALTEGRAVIR POTASSIUM
     Indication: HIV INFECTION
     Dosage: 400MG TWICE PER DAY
     Route: 048
     Dates: start: 20140801

REACTIONS (9)
  - Hypersensitivity [Recovered/Resolved]
  - Cold sweat [Unknown]
  - Pruritus [Unknown]
  - Palpitations [Recovering/Resolving]
  - Abdominal discomfort [Unknown]
  - Urticaria [Unknown]
  - Dyspnoea [Recovering/Resolving]
  - Vomiting [Unknown]
  - Pyrexia [Unknown]

NARRATIVE: CASE EVENT DATE: 20140711
